FAERS Safety Report 14689652 (Version 2)
Quarter: 2018Q2

REPORT INFORMATION
  Report Type: Spontaneous
  Country: US (occurrence: US)
  Receive Date: 20180328
  Receipt Date: 20180402
  Transmission Date: 20180711
  Serious: Yes (Hospitalization)
  Sender: FDA-Public Use
  Company Number: US-PFIZER INC-2018124235

PATIENT
  Age: 88 Year
  Sex: Female

DRUGS (2)
  1. CELEBREX [Suspect]
     Active Substance: CELECOXIB
     Indication: ARTHRITIS
     Dosage: 200 MG, 1X/DAY (200MG CAPSULES BY MOUTH ONCE A DAY)
     Route: 048
     Dates: end: 201611
  2. TYLENOL [Suspect]
     Active Substance: ACETAMINOPHEN

REACTIONS (5)
  - Erosive oesophagitis [Unknown]
  - Oesophageal haemorrhage [Not Recovered/Not Resolved]
  - Haemoglobin decreased [Unknown]
  - Muscular weakness [Unknown]
  - Body height decreased [Unknown]

NARRATIVE: CASE EVENT DATE: 201611
